FAERS Safety Report 21464167 (Version 1)
Quarter: 2022Q4

REPORT INFORMATION
  Report Type: Spontaneous
  Country: FR (occurrence: FR)
  Receive Date: 20221017
  Receipt Date: 20221017
  Transmission Date: 20230113
  Serious: Yes (Hospitalization)
  Sender: FDA-Public Use
  Company Number: FR-SUN PHARMACEUTICAL INDUSTRIES LTD-2022RR-358803

PATIENT
  Age: 71 Year
  Sex: Female
  Weight: 62.3 kg

DRUGS (5)
  1. CEFTRIAXONE [Suspect]
     Active Substance: CEFTRIAXONE
     Indication: Lung disorder
     Dosage: DOSAGE AND DURATION NOT SPECIFIED
     Route: 040
     Dates: start: 20220106, end: 20220113
  2. CIPROFLOXACIN [Suspect]
     Active Substance: CIPROFLOXACIN
     Indication: Pneumonia aspiration
     Dosage: ROCEPHINE RELAY, ROUTE OF ADMINISTRATION AND DOSAGES NOT SPECIFIED
     Route: 065
     Dates: start: 202112, end: 202112
  3. CEFTRIAXONE SODIUM [Suspect]
     Active Substance: CEFTRIAXONE SODIUM
     Indication: Pneumonia aspiration
     Dosage: DOSAGE AND DURATION NOT SPECIFIED
     Route: 040
     Dates: start: 202112, end: 202112
  4. METRONIDAZOLE [Suspect]
     Active Substance: METRONIDAZOLE
     Indication: Pneumonia aspiration
     Dosage: DOSAGE AND ROUTE OF ADMINISTRATION NOT SPECIFIED
     Route: 065
     Dates: start: 202112, end: 202112
  5. METRONIDAZOLE [Suspect]
     Active Substance: METRONIDAZOLE
     Indication: Lung disorder
     Dosage: DOSAGE AND ROUTE OF ADMINISTRATION NOT SPECIFIED
     Route: 065
     Dates: start: 20220106, end: 20220113

REACTIONS (1)
  - Clostridium difficile infection [Recovered/Resolved]

NARRATIVE: CASE EVENT DATE: 20220124
